FAERS Safety Report 17430126 (Version 1)
Quarter: 2020Q1

REPORT INFORMATION
  Report Type: Spontaneous
  Country: US (occurrence: US)
  Receive Date: 20200218
  Receipt Date: 20200218
  Transmission Date: 20200409
  Serious: No
  Sender: FDA-Public Use
  Company Number: US-PFIZER INC-2020069374

PATIENT
  Age: 82 Year
  Sex: Female
  Weight: 63.5 kg

DRUGS (5)
  1. MELATONIN [Suspect]
     Active Substance: MELATONIN
     Indication: SLEEP DISORDER
     Dosage: UNK
  2. ADVIL [Suspect]
     Active Substance: IBUPROFEN
     Indication: ARTHRITIS
     Dosage: UNK
  3. TYLENOL EXTRA STRENGTH [Suspect]
     Active Substance: ACETAMINOPHEN
     Indication: ARTHRITIS
     Dosage: 500 MG, 2X/DAY
     Route: 048
  4. LOVASTATIN. [Concomitant]
     Active Substance: LOVASTATIN
     Indication: BLOOD CHOLESTEROL
     Dosage: 80 MG, 1X/DAY
     Route: 048
  5. ADVIL [Suspect]
     Active Substance: IBUPROFEN
     Indication: SCIATICA

REACTIONS (3)
  - Drug effective for unapproved indication [Unknown]
  - Hypoacusis [Unknown]
  - Off label use [Unknown]
